FAERS Safety Report 8013387-8 (Version None)
Quarter: 2011Q4

REPORT INFORMATION
  Report Type: 
  Country: None (occurrence: None)
  Receive Date: 20111229
  Receipt Date: 20110113
  Transmission Date: 20120403
  Serious: No
  Sender: FDA-Public Use
  Company Number: US-BAYER-2011-006021

PATIENT
  Age: 42 Year
  Sex: Female

DRUGS (1)
  1. MAGNEVIST [Suspect]
     Indication: NUCLEAR MAGNETIC RESONANCE IMAGING BREAST
     Dosage: 15 ML, UNK
     Dates: start: 20110111, end: 20110111

REACTIONS (3)
  - PRURITUS [None]
  - URTICARIA [None]
  - RASH [None]
